FAERS Safety Report 21312382 (Version 1)
Quarter: 2022Q3

REPORT INFORMATION
  Report Type: Spontaneous
  Country: US (occurrence: None)
  Receive Date: 20220909
  Receipt Date: 20220909
  Transmission Date: 20221027
  Serious: No
  Sender: FDA-Public Use
  Company Number: US-ARIS GLOBAL-202206-1034

PATIENT
  Sex: Female

DRUGS (12)
  1. OXERVATE [Suspect]
     Active Substance: CENEGERMIN-BKBJ
     Indication: Keratitis
     Route: 047
     Dates: start: 202202
  2. LACOSAMIDE [Concomitant]
     Active Substance: LACOSAMIDE
  3. CHOLEST CARE [Concomitant]
  4. TRACE ELEMENTS-4 [Concomitant]
     Dosage: 0.5-0.1-30 VIAL
  5. LYSINE [Concomitant]
     Active Substance: LYSINE
  6. CALCIUM-MAGNESIUM 300 [Concomitant]
  7. MENAQUINONE 6 [Concomitant]
     Active Substance: MENAQUINONE 6
  8. TYRVAYA [Concomitant]
     Active Substance: VARENICLINE TARTRATE
     Dosage: 0.03/SPRAY SPRAY METP
  9. VITAMINS [Concomitant]
     Active Substance: VITAMINS
  10. CEQUA [Concomitant]
     Active Substance: CYCLOSPORINE
  11. RESTASIS [Concomitant]
     Active Substance: CYCLOSPORINE
  12. ARTIFICIAL TEARS [Concomitant]
     Active Substance: GLYCERIN\HYPROMELLOSES\POLYETHYLENE GLYCOL 400

REACTIONS (4)
  - Eye pain [Unknown]
  - Ocular hyperaemia [Unknown]
  - Eye swelling [Unknown]
  - Eye infection [Unknown]
